FAERS Safety Report 10681767 (Version 2)
Quarter: 2015Q1

REPORT INFORMATION
  Report Type: Spontaneous
  Country: FR (occurrence: FR)
  Receive Date: 20141230
  Receipt Date: 20150107
  Transmission Date: 20150720
  Serious: Yes (Hospitalization)
  Sender: FDA-Public Use
  Company Number: FR-TEVA-531157ISR

PATIENT
  Age: 27 Year
  Sex: Female

DRUGS (2)
  1. TRISENOX [Suspect]
     Active Substance: ARSENIC TRIOXIDE
     Indication: ACUTE PROMYELOCYTIC LEUKAEMIA
     Dosage: 13 MILLIGRAM DAILY;
     Route: 042
     Dates: start: 20141127, end: 20141209
  2. VESANOID [Suspect]
     Active Substance: TRETINOIN
     Indication: ACUTE PROMYELOCYTIC LEUKAEMIA
     Dosage: 8 DOSAGE FORMS DAILY;
     Route: 048
     Dates: start: 20141122, end: 20141209

REACTIONS (4)
  - Osteonecrosis [Not Recovered/Not Resolved]
  - Movement disorder [Unknown]
  - Arthralgia [Not Recovered/Not Resolved]
  - Bone pain [Not Recovered/Not Resolved]

NARRATIVE: CASE EVENT DATE: 20141206
